FAERS Safety Report 8530250-4 (Version None)
Quarter: 2012Q3

REPORT INFORMATION
  Report Type: 
  Country: None (occurrence: None)
  Receive Date: 20120723
  Receipt Date: 20110327
  Transmission Date: 20120928
  Serious: Yes (Other)
  Sender: FDA-Public Use
  Company Number: CZ-BAYER-200828047GPV

PATIENT
  Age: 43 Year
  Sex: Female

DRUGS (4)
  1. GLUCOCORTICOIDS [Concomitant]
     Indication: MULTIPLE SCLEROSIS
     Route: 042
  2. INTERFERON BETA-1B [Suspect]
     Dosage: UNK
     Route: 058
     Dates: start: 20070101, end: 20070301
  3. INTERFERON BETA-1B [Suspect]
     Indication: RELAPSING-REMITTING MULTIPLE SCLEROSIS
     Dosage: 8 MIU, QOD
     Route: 058
     Dates: start: 19980201, end: 20060301
  4. INTERFERON BETA-1B [Suspect]
     Dosage: UNK UNK, QOD
     Route: 058
     Dates: start: 20060601, end: 20061001

REACTIONS (17)
  - SKIN REACTION [None]
  - NERVOUS SYSTEM DISORDER [None]
  - SECONDARY HYPERTENSION [None]
  - GLYCOSURIA [None]
  - PROTEINURIA [None]
  - ANTINUCLEAR ANTIBODY POSITIVE [None]
  - TUBULOINTERSTITIAL NEPHRITIS [None]
  - RENAL FAILURE [None]
  - INFLUENZA LIKE ILLNESS [None]
  - HAEMATURIA [None]
  - LUPUS-LIKE SYNDROME [None]
  - RED BLOOD CELL SEDIMENTATION RATE INCREASED [None]
  - SJOGREN'S SYNDROME [None]
  - ABDOMINAL WALL HAEMATOMA [None]
  - MULTIPLE SCLEROSIS RELAPSE [None]
  - PYRAMIDAL TRACT SYNDROME [None]
  - XEROPHTHALMIA [None]
